FAERS Safety Report 6406597-4 (Version None)
Quarter: 2009Q4

REPORT INFORMATION
  Report Type: 
  Country: None (occurrence: None)
  Receive Date: 20091014
  Receipt Date: 20090902
  Transmission Date: 20100525
  Serious: Yes (Hospitalization)
  Sender: FDA-Public Use
  Company Number: FABR-1000915

PATIENT
  Age: 78 Year
  Sex: Male
  Weight: 76.5 kg

DRUGS (3)
  1. FABRAZYME [Suspect]
     Indication: FABRY'S DISEASE
     Dosage: 70 MG, Q2W; INTRAVENOUS; 75 MG, Q2W; INTRAVENOUS
     Route: 042
     Dates: start: 20050503
  2. AMLODIPINE [Concomitant]
  3. KLINDEASE [Concomitant]

REACTIONS (4)
  - CHEST PAIN [None]
  - DIVERTICULITIS [None]
  - DYSPNOEA [None]
  - RECTAL HAEMORRHAGE [None]
